FAERS Safety Report 4397314-0 (Version None)
Quarter: 2004Q3

REPORT INFORMATION
  Report Type: 
  Country: None (occurrence: None)
  Receive Date: 20040714
  Receipt Date: 19980114
  Transmission Date: 20050211
  Serious: Yes (Life-Threatening, Hospitalization, Disabling)
  Sender: FDA-Public Use
  Company Number: GB-GLAXOSMITHKLINE-B0052889A

PATIENT
  Age: 16 Year
  Sex: Male
  Weight: 34 kg

DRUGS (4)
  1. EPIVIR [Suspect]
     Indication: HIV INFECTION
     Dosage: 150MG PER DAY
     Route: 048
     Dates: start: 19970108
  2. SAQUINAVIR [Suspect]
     Dosage: 200MG PER DAY
     Route: 048
     Dates: start: 19970320
  3. STAVUDINE [Suspect]
     Indication: HIV INFECTION
     Dosage: 40MG PER DAY
     Route: 048
     Dates: start: 19970108
  4. ZALCITABINE [Suspect]
     Route: 065

REACTIONS (5)
  - CONVULSION [None]
  - DIARRHOEA [None]
  - HEMIPARESIS [None]
  - NEUTROPENIA [None]
  - SUBDURAL HAEMATOMA [None]
